FAERS Safety Report 5162039-0 (Version None)
Quarter: 2006Q4

REPORT INFORMATION
  Report Type: 
  Country: None (occurrence: None)
  Receive Date: 20061121
  Receipt Date: 20061116
  Transmission Date: 20070319
  Serious: Yes (Death, Hospitalization)
  Sender: FDA-Public Use
  Company Number: 2006SP004376

PATIENT
  Age: 66 Year
  Sex: Female

DRUGS (2)
  1. TEMODAL [Suspect]
     Indication: METASTASES TO CENTRAL NERVOUS SYSTEM
     Dosage: 290 MG; PO
     Route: 048
     Dates: start: 20020317, end: 20020929
  2. CISPLATIN [Concomitant]

REACTIONS (2)
  - FEBRILE BONE MARROW APLASIA [None]
  - MALIGNANT NEOPLASM PROGRESSION [None]
